FAERS Safety Report 16956205 (Version 1)
Quarter: 2019Q4

REPORT INFORMATION
  Report Type: Report from Study
  Country: US (occurrence: US)
  Receive Date: 20191024
  Receipt Date: 20191024
  Transmission Date: 20200122
  Serious: Yes (Hospitalization)
  Sender: FDA-Public Use
  Company Number: US-ASTELLAS-2019US009845

PATIENT
  Sex: Male

DRUGS (1)
  1. ISAVUCONAZOLE [Suspect]
     Active Substance: ISAVUCONAZOLE
     Indication: LUNG TRANSPLANT
     Route: 048

REACTIONS (3)
  - Product use in unapproved indication [Unknown]
  - Bladder disorder [Unknown]
  - Blood potassium increased [Unknown]
